FAERS Safety Report 22130070 (Version 1)
Quarter: 2023Q1

REPORT INFORMATION
  Report Type: Spontaneous
  Country: US (occurrence: US)
  Receive Date: 20230323
  Receipt Date: 20230323
  Transmission Date: 20230418
  Serious: No
  Sender: FDA-Public Use
  Company Number: US-BRISTOL-MYERS SQUIBB COMPANY-2023-041181

PATIENT
  Age: 43 Year
  Sex: Female

DRUGS (2)
  1. ORENCIA [Suspect]
     Active Substance: ABATACEPT
     Indication: Systemic scleroderma
     Dosage: FREQUENCY: EVER WEEK
     Route: 058
     Dates: start: 202301
  2. ORENCIA [Suspect]
     Active Substance: ABATACEPT
     Indication: Juvenile idiopathic arthritis

REACTIONS (3)
  - Joint swelling [Recovering/Resolving]
  - Arthralgia [Recovering/Resolving]
  - Off label use [Unknown]
